FAERS Safety Report 8784340 (Version 2)
Quarter: 2012Q4

REPORT INFORMATION
  Report Type: 
  Country: US (occurrence: US)
  Receive Date: 20120913
  Receipt Date: 20120917
  Transmission Date: 20130627
  Serious: No
  Sender: FDA-Public Use
  Company Number: US-PFIZER INC-2012225888

PATIENT

DRUGS (1)
  1. NICOTROL INHALER [Suspect]
     Dosage: UNK
     Dates: start: 201209

REACTIONS (1)
  - Drug ineffective [Unknown]
